FAERS Safety Report 8152014-6 (Version None)
Quarter: 2012Q1

REPORT INFORMATION
  Report Type: 
  Country: None (occurrence: None)
  Receive Date: 20120221
  Receipt Date: 20120126
  Transmission Date: 20120608
  Serious: Yes (Other)
  Sender: FDA-Public Use
  Company Number: DE-BAYER-2012-000744

PATIENT
  Age: 36 Year
  Sex: Female
  Weight: 56 kg

DRUGS (3)
  1. DROSPIRENONE AND ETHINYL ESTRADIOL [Suspect]
     Indication: CONTRACEPTION
     Dosage: 1 DF, QD
     Route: 048
     Dates: start: 20070517, end: 20070521
  2. DRUG UNKNOWN [Suspect]
  3. PARACETAMOL [Concomitant]
     Indication: NASOPHARYNGITIS
     Dosage: DAILY DOSE 500 MG
     Route: 048
     Dates: start: 20070514, end: 20070514

REACTIONS (1)
  - AUTOIMMUNE THROMBOCYTOPENIA [None]
